FAERS Safety Report 10335265 (Version 3)
Quarter: 2014Q3

REPORT INFORMATION
  Report Type: Spontaneous
  Country: US (occurrence: US)
  Receive Date: 20140723
  Receipt Date: 20140730
  Transmission Date: 20150326
  Serious: No
  Sender: FDA-Public Use
  Company Number: US-ABBVIE-13P-163-1102922-00

PATIENT
  Age: 58 Year
  Sex: Female
  Weight: 49.03 kg

DRUGS (4)
  1. LEVOTHYROXINE SODIUM. [Suspect]
     Active Substance: LEVOTHYROXINE SODIUM
     Indication: HYPOTHYROIDISM
     Dates: start: 201305, end: 201305
  2. TIROSINT [Suspect]
     Active Substance: LEVOTHYROXINE SODIUM
     Indication: HYPOTHYROIDISM
  3. LEVOXYL [Concomitant]
     Active Substance: LEVOTHYROXINE SODIUM
     Indication: HYPOTHYROIDISM
     Dates: end: 201305
  4. SYNTHROID [Suspect]
     Active Substance: LEVOTHYROXINE SODIUM
     Indication: HYPOTHYROIDISM

REACTIONS (29)
  - Migraine [Unknown]
  - Myalgia [Unknown]
  - Palpitations [Unknown]
  - Feeling jittery [Unknown]
  - Dysgeusia [Unknown]
  - Product taste abnormal [Unknown]
  - Drug hypersensitivity [Unknown]
  - Dysphagia [Unknown]
  - Tongue ulceration [Unknown]
  - Influenza like illness [Unknown]
  - Diarrhoea [Unknown]
  - Rash [Unknown]
  - Skin burning sensation [Unknown]
  - Adverse reaction [Unknown]
  - Oral candidiasis [Unknown]
  - Weight decreased [Unknown]
  - Arthralgia [Unknown]
  - Dyspepsia [Unknown]
  - Eye irritation [Unknown]
  - Hypertension [Unknown]
  - Dry mouth [Unknown]
  - Quality of life decreased [Unknown]
  - Aphagia [Unknown]
  - Headache [Unknown]
  - Arthritis [Unknown]
  - Muscle tightness [Unknown]
  - Retching [Unknown]
  - Feeling abnormal [Unknown]
  - Drug intolerance [Unknown]

NARRATIVE: CASE EVENT DATE: 201305
